FAERS Safety Report 8156446 (Version 6)
Quarter: 2013Q3

REPORT INFORMATION
  Report Type: Spontaneous
  Country: US (occurrence: US)
  Receive Date: 20110926
  Receipt Date: 20130917
  Transmission Date: 20140515
  Serious: Yes (Hospitalization)
  Sender: FDA-Public Use
  Company Number: US-GLAXOSMITHKLINE-A0915613A

PATIENT
  Age: 65 Year
  Sex: Male
  Weight: 83.6 kg

DRUGS (1)
  1. AVANDIA [Suspect]
     Indication: DIABETES MELLITUS
     Dosage: 2MG PER DAY
     Route: 048
     Dates: start: 2003, end: 2007

REACTIONS (7)
  - Myocardial infarction [Unknown]
  - Cerebrovascular accident [Unknown]
  - Cardiac failure congestive [Unknown]
  - Coronary artery disease [Unknown]
  - Hypercholesterolaemia [Unknown]
  - Hypertension [Unknown]
  - Implantable defibrillator insertion [Unknown]
